FAERS Safety Report 8001203-X (Version None)
Quarter: 2011Q4

REPORT INFORMATION
  Report Type: 
  Country: None (occurrence: None)
  Receive Date: 20111219
  Receipt Date: 20111205
  Transmission Date: 20120403
  Serious: Yes (Other)
  Sender: FDA-Public Use
  Company Number: 2011MA017406

PATIENT
  Sex: Male
  Weight: 117.9352 kg

DRUGS (5)
  1. DIGOXIN [Suspect]
     Indication: PRODUCT USED FOR UNKNOWN INDICATION
     Dosage: 0.25 MG;QD;PO
     Route: 048
     Dates: start: 20040720, end: 20090929
  2. ZESTRIL [Concomitant]
  3. COREG [Concomitant]
  4. LASIX [Concomitant]
  5. COUMADIN [Concomitant]

REACTIONS (21)
  - INCREASED UPPER AIRWAY SECRETION [None]
  - CHEST DISCOMFORT [None]
  - JOINT SWELLING [None]
  - TENDON RUPTURE [None]
  - EXOSTOSIS [None]
  - COUGH [None]
  - PARAESTHESIA [None]
  - BACK PAIN [None]
  - HEADACHE [None]
  - DIZZINESS [None]
  - OSTEOARTHRITIS [None]
  - PYREXIA [None]
  - ARTHRALGIA [None]
  - RHINORRHOEA [None]
  - NASAL CONGESTION [None]
  - MUSCULOSKELETAL PAIN [None]
  - OROPHARYNGEAL PAIN [None]
  - RASH [None]
  - MUSCULOSKELETAL DISORDER [None]
  - ATRIAL FIBRILLATION [None]
  - ROTATOR CUFF SYNDROME [None]
